FAERS Safety Report 10996499 (Version 1)
Quarter: 2015Q2

REPORT INFORMATION
  Report Type: Spontaneous
  Country: US (occurrence: US)
  Receive Date: 20150408
  Receipt Date: 20150408
  Transmission Date: 20150821
  Serious: Yes (Hospitalization, Other)
  Sender: FDA-Public Use
  Company Number: US-AMGEN-USASP2015032416

PATIENT
  Age: 92 Year
  Sex: Male
  Weight: 68.27 kg

DRUGS (3)
  1. PROCRIT [Suspect]
     Active Substance: ERYTHROPOIETIN
     Indication: MYELODYSPLASTIC SYNDROME
     Dosage: 20000 UNIT, WEEKLY
     Route: 042
     Dates: start: 2014
  2. LEVAQUIN [Suspect]
     Active Substance: LEVOFLOXACIN
     Indication: PRODUCT USED FOR UNKNOWN INDICATION
     Dosage: UNK
     Route: 042
     Dates: start: 2015, end: 2015
  3. LEVAQUIN [Suspect]
     Active Substance: LEVOFLOXACIN
     Dosage: UNK
     Route: 048
     Dates: start: 2015, end: 2015

REACTIONS (16)
  - Influenza [Unknown]
  - Blood urine present [Recovered/Resolved]
  - Weight decreased [Not Recovered/Not Resolved]
  - Urticaria [Not Recovered/Not Resolved]
  - Pneumonia [Unknown]
  - Hypertension [Recovered/Resolved]
  - Hypersensitivity [Not Recovered/Not Resolved]
  - Decreased appetite [Recovered/Resolved]
  - Muscle atrophy [Not Recovered/Not Resolved]
  - Bacteraemia [Unknown]
  - Lip swelling [Not Recovered/Not Resolved]
  - Rash generalised [Not Recovered/Not Resolved]
  - Hypotension [Recovered/Resolved]
  - Eyelid disorder [Not Recovered/Not Resolved]
  - Clostridium difficile infection [Recovered/Resolved]
  - Asthenia [Not Recovered/Not Resolved]

NARRATIVE: CASE EVENT DATE: 2015
